FAERS Safety Report 14875693 (Version 1)
Quarter: 2018Q2

REPORT INFORMATION
  Report Type: Spontaneous
  Country: US (occurrence: US)
  Receive Date: 20180510
  Receipt Date: 20180510
  Transmission Date: 20180711
  Serious: No
  Sender: FDA-Public Use
  Company Number: US-MAYNE PHARMA-2018MYN000084

PATIENT

DRUGS (1)
  1. NORTRIPTYLINE HYDROCHLORIDE. [Suspect]
     Active Substance: NORTRIPTYLINE HYDROCHLORIDE
     Indication: MUSCLE SPASMS
     Dosage: 40 MG, QD
     Route: 048
     Dates: end: 201711

REACTIONS (5)
  - Product use in unapproved indication [Unknown]
  - Saliva altered [Not Recovered/Not Resolved]
  - Mastication disorder [Not Recovered/Not Resolved]
  - Withdrawal syndrome [Not Recovered/Not Resolved]
  - Dysarthria [Not Recovered/Not Resolved]

NARRATIVE: CASE EVENT DATE: 201711
